FAERS Safety Report 18344552 (Version 2)
Quarter: 2020Q4

REPORT INFORMATION
  Report Type: Report from Study
  Country: GB (occurrence: GB)
  Receive Date: 20201005
  Receipt Date: 20201016
  Transmission Date: 20210114
  Serious: Yes (Death)
  Sender: FDA-Public Use
  Company Number: GB-PFIZER INC-2020383183

PATIENT

DRUGS (17)
  1. ACICLOVIR [Concomitant]
     Active Substance: ACYCLOVIR
     Dosage: UNK
  2. VINCRISTINE SULFATE. [Suspect]
     Active Substance: VINCRISTINE SULFATE
     Indication: DIFFUSE LARGE B-CELL LYMPHOMA
     Dosage: 1.5 MG/M2, CYCLIC (MAX 2 MG, DAYS 1 AND 8)
     Route: 042
  3. DOXORUBICIN HCL [Suspect]
     Active Substance: DOXORUBICIN HYDROCHLORIDE
     Indication: DIFFUSE LARGE B-CELL LYMPHOMA
     Dosage: 40 MG/M2, CYCLIC (DAY 1)
     Route: 042
  4. ETOPOSIDE. [Suspect]
     Active Substance: ETOPOSIDE
     Indication: DIFFUSE LARGE B-CELL LYMPHOMA
     Dosage: 60 MG/M2, CYCLIC (DAY 1-5)
  5. RITUXIMAB. [Suspect]
     Active Substance: RITUXIMAB
     Indication: DIFFUSE LARGE B-CELL LYMPHOMA
     Dosage: 375 MG/M2, CYCLIC  (DAYS 1, 11, 21 AND 42)
  6. METHOTREXATE SODIUM. [Suspect]
     Active Substance: METHOTREXATE SODIUM
     Dosage: 12 MG, CYCLIC (DAY 5)
     Route: 037
  7. METHOTREXATE SODIUM. [Suspect]
     Active Substance: METHOTREXATE SODIUM
     Dosage: 3000 MG/M2 CYCLIC (OVER 24 HRS, 300MG ADMIN OVER 1HR THEN 2700MG OVER 23H)
     Route: 042
  8. IFOSFAMIDE. [Suspect]
     Active Substance: IFOSFAMIDE
     Indication: DIFFUSE LARGE B-CELL LYMPHOMA
     Dosage: 1500 MG/M2, CYCLIC (DAY 1-5)
  9. MESNA. [Suspect]
     Active Substance: MESNA
     Indication: DIFFUSE LARGE B-CELL LYMPHOMA
     Dosage: 1200 MG, CYCLIC (DAY 1-5)
  10. PEGYLATED RECOMBINANT HUMAN GRANULOCYTE COLONY STIMULATING FACTOR [Concomitant]
     Dosage: UNK
  11. CYCLOPHOSPHAMIDE. [Suspect]
     Active Substance: CYCLOPHOSPHAMIDE
     Indication: DIFFUSE LARGE B-CELL LYMPHOMA
     Dosage: 800 MG/M2, CYCLIC (DAY 1)
     Route: 042
  12. PEGFILGRASTIM [Suspect]
     Active Substance: PEGFILGRASTIM
     Indication: DIFFUSE LARGE B-CELL LYMPHOMA
     Dosage: 6 MG, CYCLIC (DAY 7 AND 13)
     Route: 058
  13. METHOTREXATE SODIUM. [Suspect]
     Active Substance: METHOTREXATE SODIUM
     Indication: DIFFUSE LARGE B-CELL LYMPHOMA
     Dosage: 12 MG, CYCLIC (DAY 15, DAY 17 300 MG ADMINISTERED OVER 1 H FOLLOWED BY 2700 MG OVER 23 H)
     Route: 037
  14. CYTARABINE. [Suspect]
     Active Substance: CYTARABINE
     Indication: DIFFUSE LARGE B-CELL LYMPHOMA
     Dosage: 70 MG/M2, CYCLIC (DAY 2-4, DAY 6, 7-9)
     Route: 037
  15. CYTARABINE. [Suspect]
     Active Substance: CYTARABINE
     Dosage: 2000 MG CYCLIC (12 H, DAYS 1 AND 2)
     Route: 042
  16. CALCIUM FOLINATE [Suspect]
     Active Substance: LEUCOVORIN CALCIUM
     Indication: DIFFUSE LARGE B-CELL LYMPHOMA
     Dosage: 15 MG/M2, CYCLIC (FROM 36 H AFTER METHOTREXATE UNTIL CLEARANCE)
     Route: 042
  17. CYCLOPHOSPHAMIDE. [Suspect]
     Active Substance: CYCLOPHOSPHAMIDE
     Dosage: 200 MG/M2, CYCLIC (DAY 2-5)
     Route: 042

REACTIONS (1)
  - Neutropenic sepsis [Fatal]
